FAERS Safety Report 20024805 (Version 1)
Quarter: 2021Q4

REPORT INFORMATION
  Report Type: Spontaneous
  Country: CN (occurrence: CN)
  Receive Date: 20211102
  Receipt Date: 20211102
  Transmission Date: 20220304
  Serious: Yes (Hospitalization, Other)
  Sender: FDA-Public Use
  Company Number: CN-PFIZER INC-202101409780

PATIENT
  Age: 42 Year
  Sex: Female
  Weight: 90 kg

DRUGS (9)
  1. EPIRUBICIN [Suspect]
     Active Substance: EPIRUBICIN
     Indication: Breast cancer
     Dosage: 170 MG, 1X/DAY
     Route: 041
     Dates: start: 20210712, end: 20210712
  2. EPIRUBICIN [Suspect]
     Active Substance: EPIRUBICIN
     Dosage: 170 MG, 1X/DAY
     Route: 041
     Dates: start: 20210804, end: 20210804
  3. EPIRUBICIN [Suspect]
     Active Substance: EPIRUBICIN
     Dosage: 170 MG, 1X/DAY
     Route: 041
     Dates: start: 20210825, end: 20210825
  4. CYCLOPHOSPHAMIDE [Suspect]
     Active Substance: CYCLOPHOSPHAMIDE
     Indication: Breast cancer
     Dosage: 1100 MG, 1X/DAY
     Route: 041
     Dates: start: 20210712, end: 20210712
  5. CYCLOPHOSPHAMIDE [Suspect]
     Active Substance: CYCLOPHOSPHAMIDE
     Dosage: 1100 MG, 1X/DAY
     Route: 041
     Dates: start: 20210804, end: 20210804
  6. CYCLOPHOSPHAMIDE [Suspect]
     Active Substance: CYCLOPHOSPHAMIDE
     Dosage: 1100 MG, 1X/DAY
     Route: 041
     Dates: start: 20210825, end: 20210825
  7. DEXRAZOXANE [Suspect]
     Active Substance: DEXRAZOXANE
     Indication: Breast cancer
     Dosage: 1700 MG, 1X/DAY
     Route: 041
     Dates: start: 20210712, end: 20210712
  8. DEXRAZOXANE [Suspect]
     Active Substance: DEXRAZOXANE
     Dosage: 1700 MG, 1X/DAY
     Route: 041
     Dates: start: 20210804, end: 20210804
  9. DEXRAZOXANE [Suspect]
     Active Substance: DEXRAZOXANE
     Dosage: 1700 MG, 1X/DAY
     Route: 041
     Dates: start: 20210825, end: 20210825

REACTIONS (1)
  - Hepatic function abnormal [Recovering/Resolving]

NARRATIVE: CASE EVENT DATE: 20210825
